FAERS Safety Report 9699271 (Version 1)
Quarter: 2013Q4

REPORT INFORMATION
  Report Type: Spontaneous
  Country: US (occurrence: US)
  Receive Date: 20131120
  Receipt Date: 20131120
  Transmission Date: 20140711
  Serious: No
  Sender: FDA-Public Use
  Company Number: US-GILEAD-2008-0015345

PATIENT
  Age: 74 Year
  Sex: Female

DRUGS (7)
  1. LETAIRIS [Suspect]
     Indication: COR PULMONALE CHRONIC
     Route: 048
     Dates: start: 20071220
  2. FUROSEMIDE [Concomitant]
  3. LIPITOR [Concomitant]
  4. PLAVIX [Concomitant]
  5. FAMOTIDINE [Concomitant]
  6. NAPROXEN [Concomitant]
  7. DOCUSATE [Concomitant]

REACTIONS (1)
  - Constipation [None]
